FAERS Safety Report 6677938-8 (Version None)
Quarter: 2010Q2

REPORT INFORMATION
  Report Type: 
  Country: None (occurrence: None)
  Receive Date: 20100412
  Receipt Date: 20100330
  Transmission Date: 20101027
  Serious: Yes (Hospitalization)
  Sender: FDA-Public Use
  Company Number: DE-ELI_LILLY_AND_COMPANY-DE201003008326

PATIENT
  Sex: Female
  Weight: 79 kg

DRUGS (2)
  1. PEMETREXED [Suspect]
     Indication: NON-SMALL CELL LUNG CANCER
     Dosage: 900 MG, UNK
     Route: 042
     Dates: start: 20100226
  2. CARBOPLATIN [Suspect]
     Indication: NON-SMALL CELL LUNG CANCER
     Dosage: 460 MG, UNK
     Route: 042
     Dates: start: 20100226

REACTIONS (5)
  - ANAEMIA [None]
  - EPISTAXIS [None]
  - INFECTION [None]
  - LEUKOPENIA [None]
  - THROMBOCYTOPENIA [None]
